FAERS Safety Report 7317995-9 (Version None)
Quarter: 2011Q1

REPORT INFORMATION
  Report Type: 
  Country: None (occurrence: None)
  Receive Date: 20110227
  Receipt Date: 20110201
  Transmission Date: 20110831
  Serious: No
  Sender: FDA-Public Use
  Company Number: US-B.I. PHARMACEUTICALS,INC./RIDGEFIELD-2011-BP-03465BP

PATIENT
  Sex: Male

DRUGS (7)
  1. PRADAXA [Suspect]
     Indication: ATRIAL FIBRILLATION
     Dosage: 300 MG
     Route: 048
     Dates: start: 20110123
  2. GLYBURIDE [Concomitant]
     Indication: DIABETES MELLITUS
  3. COLCHICINE [Concomitant]
     Indication: GOUT
  4. METFORMIN HCL [Concomitant]
     Indication: DIABETES MELLITUS
  5. PREVACID [Concomitant]
     Indication: HELICOBACTER INFECTION
  6. TOPROL-XL [Concomitant]
     Indication: ATRIAL FIBRILLATION
  7. PREDNISOLONE EYE DROPS [Concomitant]
     Indication: MACULAR DEGENERATION

REACTIONS (3)
  - NAUSEA [None]
  - ABDOMINAL DISCOMFORT [None]
  - FATIGUE [None]
